FAERS Safety Report 19739867 (Version 1)
Quarter: 2021Q3

REPORT INFORMATION
  Report Type: Spontaneous
  Country: DE (occurrence: DE)
  Receive Date: 20210823
  Receipt Date: 20210823
  Transmission Date: 20211014
  Serious: Yes (Other)
  Sender: FDA-Public Use
  Company Number: DE-GILEAD-2021-0544836

PATIENT
  Age: 72 Year
  Sex: Male

DRUGS (3)
  1. JANSSEN COVID?19 VACCINE [Interacting]
     Active Substance: AD26.COV2.S
     Indication: COVID-19 IMMUNISATION
     Dosage: UNK
     Route: 065
     Dates: start: 202105, end: 202105
  2. ZYDELIG [Suspect]
     Active Substance: IDELALISIB
     Indication: PRODUCT USED FOR UNKNOWN INDICATION
     Dosage: UNK
     Route: 065
     Dates: start: 2019, end: 202106
  3. ZYDELIG [Interacting]
     Active Substance: IDELALISIB
     Dosage: UNK
     Route: 065
     Dates: start: 20210801

REACTIONS (3)
  - Hip surgery [Unknown]
  - Vaccination failure [Not Recovered/Not Resolved]
  - Drug interaction [Not Recovered/Not Resolved]

NARRATIVE: CASE EVENT DATE: 2021
